APPROVED DRUG PRODUCT: NYSTATIN
Active Ingredient: NYSTATIN
Strength: 500,000 UNITS
Dosage Form/Route: TABLET;ORAL
Application: A062524 | Product #001
Applicant: CHARTWELL RX SCIENCES LLC
Approved: Nov 26, 1985 | RLD: No | RS: No | Type: DISCN